FAERS Safety Report 8295913-7 (Version None)
Quarter: 2012Q2

REPORT INFORMATION
  Report Type: 
  Country: None (occurrence: None)
  Receive Date: 20120418
  Receipt Date: 20100916
  Transmission Date: 20120825
  Serious: Yes (Hospitalization)
  Sender: FDA-Public Use
  Company Number: CN-ALLERGAN-1017083US

PATIENT

DRUGS (1)
  1. BOTULINUM TOXIN TYPE A [Suspect]
     Indication: SKIN WRINKLING
     Dosage: UNK UNITS, SINGLE
     Route: 030

REACTIONS (8)
  - VIITH NERVE PARALYSIS [None]
  - MUSCULAR WEAKNESS [None]
  - DYSPHAGIA [None]
  - NEUROPATHY PERIPHERAL [None]
  - DYSARTHRIA [None]
  - TOXICITY TO VARIOUS AGENTS [None]
  - MYOPATHY [None]
  - DIPLOPIA [None]
